FAERS Safety Report 9175898 (Version 2)
Quarter: 2013Q4

REPORT INFORMATION
  Report Type: Report from Study
  Country: US (occurrence: US)
  Receive Date: 20130320
  Receipt Date: 20131126
  Transmission Date: 20140711
  Serious: Yes (Hospitalization, Other)
  Sender: FDA-Public Use
  Company Number: US-ROCHE-1151491

PATIENT
  Age: 36 Year
  Sex: Female
  Weight: 64.92 kg

DRUGS (23)
  1. RO 5045337 (MDM2 ANTAGONIST) [Suspect]
     Indication: ACUTE MYELOID LEUKAEMIA
     Dosage: LAST DOSE PRIOR TO SAE WAS ON 25/OCT/2012.
     Route: 048
     Dates: start: 20121016
  2. CYTARABINE [Suspect]
     Indication: ACUTE MYELOID LEUKAEMIA
     Dosage: LAST DOSE PRIOR TO SAE WAS ON 25/OCT/2012.
     Route: 058
     Dates: start: 20121016
  3. ALLOPURINOL [Concomitant]
     Route: 065
     Dates: start: 20121023
  4. OXYCONTIN [Concomitant]
     Route: 065
     Dates: start: 20121023
  5. OXYCODONE [Concomitant]
     Route: 065
     Dates: start: 20121023
  6. VALTREX [Concomitant]
     Route: 065
     Dates: start: 20120521
  7. ZOFRAN [Concomitant]
     Route: 065
     Dates: start: 20121023
  8. NEXIUM [Concomitant]
     Route: 065
     Dates: start: 20121023
  9. PHENERGAN [Concomitant]
     Route: 065
     Dates: start: 20121023
  10. BISACODYL [Concomitant]
     Route: 065
     Dates: start: 20121023
  11. COLACE [Concomitant]
     Route: 065
     Dates: start: 20121023
  12. LIDOCAINE [Concomitant]
     Dosage: DOSE FORM = PATCH.
     Route: 065
     Dates: start: 20121017
  13. AMPICILLIN [Concomitant]
     Route: 065
  14. ACETAMINOPHEN [Concomitant]
     Route: 065
  15. CIPROFLOXACIN [Concomitant]
     Route: 065
  16. GUAIFENESIN [Concomitant]
     Route: 065
  17. HYDROXYUREA [Concomitant]
     Route: 065
  18. LOPERAMIDE [Concomitant]
     Route: 065
  19. MAG SULFATE [Concomitant]
     Route: 065
  20. PANTOPRAZOL [Concomitant]
     Route: 065
  21. POTASSIUM CHLORIDE [Concomitant]
     Route: 065
  22. VALACYCLOVIR [Concomitant]
     Route: 065
  23. VORICONAZOL [Concomitant]
     Route: 065
     Dates: start: 20120820

REACTIONS (2)
  - Pericardial effusion [Recovered/Resolved]
  - Cancer pain [Recovered/Resolved with Sequelae]
